FAERS Safety Report 8088449-X (Version None)
Quarter: 2012Q1

REPORT INFORMATION
  Report Type: 
  Country: None (occurrence: None)
  Receive Date: 20120128
  Receipt Date: 20110416
  Transmission Date: 20120608
  Serious: No
  Sender: FDA-Public Use
  Company Number: US-ABBOTT-11P-163-0719774-00

PATIENT
  Age: 23 Year
  Sex: Male

DRUGS (9)
  1. PHENERGAN [Concomitant]
     Indication: NAUSEA
     Dosage: AS NEEDED
  2. PROAIR HFA [Concomitant]
     Indication: ASTHMA
     Dosage: AS NEEDED
  3. DEXILANT [Concomitant]
     Indication: GASTROOESOPHAGEAL REFLUX DISEASE
  4. FOLIC ACID [Concomitant]
     Indication: VITAMIN SUPPLEMENTATION
  5. ADVAIR DISKUS 100/50 [Concomitant]
     Indication: ASTHMA
     Dosage: 250/50; 2 IN 1 DAY
  6. ASACOL [Concomitant]
     Indication: CROHN'S DISEASE
  7. HUMIRA [Suspect]
     Indication: CROHN'S DISEASE
     Dates: start: 20110401, end: 20110401
  8. HUMIRA [Suspect]
     Dates: start: 20110415
  9. IMURAN [Concomitant]
     Indication: CROHN'S DISEASE

REACTIONS (5)
  - NASAL CONGESTION [None]
  - EYE PRURITUS [None]
  - PYREXIA [None]
  - RESTLESSNESS [None]
  - SNEEZING [None]
